FAERS Safety Report 15159279 (Version 2)
Quarter: 2018Q3

REPORT INFORMATION
  Report Type: Spontaneous
  Country: US (occurrence: US)
  Receive Date: 20180718
  Receipt Date: 20180801
  Transmission Date: 20181010
  Serious: Yes (Other)
  Sender: FDA-Public Use
  Company Number: US-BAYER-2018-134949

PATIENT
  Age: 53 Year
  Sex: Female

DRUGS (2)
  1. PARACETAMOL [Suspect]
     Active Substance: ACETAMINOPHEN
     Indication: ANALGESIC THERAPY
     Dosage: UNK
     Route: 048
  2. PARACETAMOL [Suspect]
     Active Substance: ACETAMINOPHEN
     Indication: ANALGESIC THERAPY
     Dosage: 1000 MG, UNK
     Route: 048

REACTIONS (7)
  - Throat tightness [None]
  - Food allergy [None]
  - Abdominal pain upper [None]
  - Vomiting [None]
  - Oral pruritus [None]
  - Urticaria [None]
  - Pruritus [None]
